FAERS Safety Report 7669960-X (Version None)
Quarter: 2011Q3

REPORT INFORMATION
  Report Type: 
  Country: None (occurrence: None)
  Receive Date: 20110808
  Receipt Date: 20110728
  Transmission Date: 20111222
  Serious: Yes (Hospitalization)
  Sender: FDA-Public Use
  Company Number: PHHY2011KR68637

PATIENT
  Age: 54 Year
  Sex: Male

DRUGS (2)
  1. ATENOLOL [Concomitant]
     Dosage: 25 MG, DAILY
  2. FLECAINIDE ACETATE [Suspect]
     Indication: ATRIAL FIBRILLATION
     Dosage: 200 MG, DAILY

REACTIONS (7)
  - ELECTROCARDIOGRAM T WAVE INVERSION [None]
  - TACHYARRHYTHMIA [None]
  - BRADYCARDIA [None]
  - LOSS OF CONSCIOUSNESS [None]
  - LONG QT SYNDROME [None]
  - BUNDLE BRANCH BLOCK RIGHT [None]
  - ELECTROCARDIOGRAM QT PROLONGED [None]
